FAERS Safety Report 9757501 (Version 1)
Quarter: 2013Q4

REPORT INFORMATION
  Report Type: Spontaneous
  Country: GB (occurrence: GB)
  Receive Date: 20131215
  Receipt Date: 20131215
  Transmission Date: 20140711
  Serious: Yes (Death)
  Sender: FDA-Public Use
  Company Number: GB-JNJFOC-20131206387

PATIENT
  Age: 2 Year
  Sex: Female

DRUGS (2)
  1. CALPOL [Suspect]
     Route: 065
  2. CALPOL [Suspect]
     Indication: IMMUNISATION
     Route: 065

REACTIONS (1)
  - Drug ineffective for unapproved indication [Fatal]
